FAERS Safety Report 7512591-2 (Version None)
Quarter: 2011Q2

REPORT INFORMATION
  Report Type: 
  Country: None (occurrence: None)
  Receive Date: 20110525
  Receipt Date: 20110525
  Transmission Date: 20111010
  Serious: Yes (Death)
  Sender: FDA-Public Use
  Company Number: None

PATIENT
  Sex: Male

DRUGS (8)
  1. RENAL CAPS [Concomitant]
  2. REVLIMID [Suspect]
     Indication: MULTIPLE MYELOMA
     Dosage: 5MG QD ORALLY
     Route: 048
  3. AMLODIPINE [Concomitant]
  4. DECADRON [Concomitant]
  5. ACYCLOVIR [Concomitant]
  6. OMEPRAZOLE [Concomitant]
  7. MORPHINE [Concomitant]
  8. RENAGEL [Concomitant]

REACTIONS (3)
  - DEEP VEIN THROMBOSIS [None]
  - CELLULITIS [None]
  - BLOOD GLUCOSE INCREASED [None]
